FAERS Safety Report 15595941 (Version 2)
Quarter: 2019Q1

REPORT INFORMATION
  Report Type: Spontaneous
  Country: US (occurrence: US)
  Receive Date: 20181107
  Receipt Date: 20190214
  Transmission Date: 20190417
  Serious: Yes (Hospitalization, Other)
  Sender: FDA-Public Use
  Company Number: US-009507513-1810USA013170

PATIENT
  Age: 24 Year
  Sex: Female

DRUGS (4)
  1. PREGNYL [Suspect]
     Active Substance: CHORIOGONADOTROPIN ALFA
     Indication: OVULATION DISORDER
     Dosage: 3,300 U
  2. METFORMIN [Suspect]
     Active Substance: METFORMIN HYDROCHLORIDE
     Indication: OVARIAN DISORDER
  3. GONADOTROPHIN, SERUM [Suspect]
     Active Substance: GONADOTROPHIN, CHORIONIC
     Dosage: 150 IU INTERNATIONAL UNIT(S) DAILY
  4. GONADOTROPHIN, SERUM [Suspect]
     Active Substance: GONADOTROPHIN, CHORIONIC
     Indication: OVARIAN DISORDER
     Dosage: 75 IU INTERNATIONAL UNIT(S), DAILY

REACTIONS (2)
  - Ectopic pregnancy [Unknown]
  - Maternal exposure during pregnancy [Recovered/Resolved]
